FAERS Safety Report 8585724 (Version 3)
Quarter: 2013Q2

REPORT INFORMATION
  Report Type: Spontaneous
  Country: US (occurrence: US)
  Receive Date: 20120530
  Receipt Date: 20130622
  Transmission Date: 20140414
  Serious: No
  Sender: FDA-Public Use
  Company Number: US-B.I. PHARMACEUTICALS,INC./RIDGEFIELD-2012-BP-11102BP

PATIENT
  Age: 67 Year
  Sex: Female

DRUGS (14)
  1. PRADAXA [Suspect]
     Indication: ATRIAL FIBRILLATION
     Dosage: 300 MG
     Route: 048
     Dates: start: 2011, end: 201204
  2. PRADAXA [Suspect]
     Indication: ANTICOAGULANT THERAPY
     Dosage: 300 MG
     Route: 048
     Dates: start: 201209, end: 20130412
  3. PRADAXA [Suspect]
     Dosage: 300 MG
     Route: 048
     Dates: start: 20130420, end: 20130601
  4. CALCIUM WITH VITAMIN D [Concomitant]
     Indication: BONE DISORDER
     Dosage: 1200 MG
     Route: 048
     Dates: start: 2007
  5. POTASSIUM [Concomitant]
     Indication: ROUTINE HEALTH MAINTENANCE
     Dosage: 10 MEQ
     Route: 048
  6. LEVETIRACETAM [Concomitant]
     Indication: CONVULSION
     Dosage: 1500 MG
     Route: 048
     Dates: start: 200906
  7. LEVETIRACETAM [Concomitant]
     Dosage: 1000 MG
     Route: 048
  8. METOPROLOL TARTRATE [Concomitant]
     Indication: HYPERTENSION
     Dosage: 100 MG
     Route: 048
     Dates: start: 2011
  9. METOPROLOL TARTRATE [Concomitant]
     Indication: HEART RATE
  10. VITAMIN [Concomitant]
     Indication: ROUTINE HEALTH MAINTENANCE
     Route: 048
  11. ASPIRIN [Concomitant]
     Indication: SUPRAVENTRICULAR TACHYCARDIA
     Dosage: 81 MG
     Route: 048
     Dates: start: 2009
  12. CENTRUM 50 + MULTIVITAMIN [Concomitant]
     Route: 048
     Dates: start: 2000
  13. METOPROLOL [Concomitant]
     Indication: HYPERTENSION
     Dosage: 100 MG
     Route: 048
  14. KEPPRA [Concomitant]
     Indication: CONVULSION
     Dosage: 1500 MG
     Route: 048

REACTIONS (8)
  - Eructation [Not Recovered/Not Resolved]
  - Dizziness [Not Recovered/Not Resolved]
  - Dyspepsia [Not Recovered/Not Resolved]
  - Asthenia [Not Recovered/Not Resolved]
  - Oedema peripheral [Recovered/Resolved]
  - Pulmonary congestion [Recovered/Resolved]
  - Vertigo [Recovered/Resolved]
  - Fall [Recovered/Resolved]
